FAERS Safety Report 7443492-6 (Version None)
Quarter: 2011Q2

REPORT INFORMATION
  Report Type: 
  Country: None (occurrence: None)
  Receive Date: 20110420
  Receipt Date: 20110407
  Transmission Date: 20111010
  Serious: Yes (Hospitalization)
  Sender: FDA-Public Use
  Company Number: 2011MA003554

PATIENT
  Age: 26 Year
  Sex: Female

DRUGS (1)
  1. PHENYTOIN [Suspect]
     Indication: GRAND MAL CONVULSION
     Dosage: 300 MG; OD' PO
     Route: 048

REACTIONS (7)
  - STAPHYLOCOCCUS TEST POSITIVE [None]
  - DERMATITIS BULLOUS [None]
  - STREPTOCOCCUS TEST POSITIVE [None]
  - CHILLS [None]
  - TOXIC EPIDERMAL NECROLYSIS [None]
  - PRURITUS GENERALISED [None]
  - PYREXIA [None]
